FAERS Safety Report 6652566-9 (Version None)
Quarter: 2010Q1

REPORT INFORMATION
  Report Type: 
  Country: None (occurrence: None)
  Receive Date: 20100325
  Receipt Date: 20100325
  Transmission Date: 20100710
  Serious: Yes (Other)
  Sender: FDA-Public Use
  Company Number: None

PATIENT
  Sex: Male
  Weight: 150.5942 kg

DRUGS (9)
  1. PEG-INTRON [Suspect]
     Indication: HEPATITIS C
     Dosage: 150 MCG/0.5 ML WEEKLY SQ
     Route: 058
     Dates: start: 20100323
  2. RIBAVIRIN [Suspect]
     Indication: HEPATITIS C
     Dosage: 3 CAP IN AM; 4 CAP DAILY PO
     Route: 048
     Dates: start: 20100323
  3. MULTI-VITAMIN [Concomitant]
  4. HUMALOG [Concomitant]
  5. LANTUS [Concomitant]
  6. ASPIRIN [Concomitant]
  7. RESTORIL [Concomitant]
  8. XANAX [Concomitant]
  9. OXYCODONE [Concomitant]

REACTIONS (2)
  - ARTHRALGIA [None]
  - PYREXIA [None]
